FAERS Safety Report 7359211-8 (Version None)
Quarter: 2011Q1

REPORT INFORMATION
  Report Type: 
  Country: None (occurrence: None)
  Receive Date: 20110317
  Receipt Date: 20110304
  Transmission Date: 20110831
  Serious: Yes (Disabling)
  Sender: FDA-Public Use
  Company Number: PHHY2011US16171

PATIENT
  Sex: Female
  Weight: 54.422 kg

DRUGS (4)
  1. YAZ [Concomitant]
     Indication: CONTRACEPTION
     Dosage: UNK
     Route: 048
     Dates: start: 20080101
  2. GABAPENTIN [Concomitant]
     Indication: PAIN
     Dosage: 100 MG, UNK
     Route: 048
     Dates: start: 20080801
  3. PROVIGIL [Concomitant]
     Indication: FATIGUE
     Dosage: 200 MG, UNK
     Route: 048
     Dates: start: 20100101
  4. GILENYA [Suspect]
     Indication: MULTIPLE SCLEROSIS
     Dosage: 0.5 MG, QD
     Route: 048
     Dates: start: 20110224, end: 20110303

REACTIONS (10)
  - BACK PAIN [None]
  - DECREASED APPETITE [None]
  - VOMITING [None]
  - NAUSEA [None]
  - EMOTIONAL DISORDER [None]
  - CRYING [None]
  - DIZZINESS [None]
  - FATIGUE [None]
  - HEADACHE [None]
  - PHOTOSENSITIVITY REACTION [None]
